FAERS Safety Report 7864982-8 (Version None)
Quarter: 2011Q4

REPORT INFORMATION
  Report Type: 
  Country: None (occurrence: None)
  Receive Date: 20111028
  Receipt Date: 20100927
  Transmission Date: 20120403
  Serious: Yes (Hospitalization)
  Sender: FDA-Public Use
  Company Number: US-GLAXOSMITHKLINE-A0883516A

PATIENT
  Age: 28 Year
  Sex: Female

DRUGS (8)
  1. METOPROLOL TARTRATE [Concomitant]
  2. ADVAIR DISKUS 100/50 [Suspect]
     Indication: ASTHMA
     Dosage: 1PUFF TWICE PER DAY
     Route: 055
     Dates: start: 20100501
  3. CLONAZEPAM [Concomitant]
  4. PRILOSEC [Concomitant]
  5. CARAFATE [Concomitant]
  6. PENICILLIN [Concomitant]
  7. LAMICTAL [Concomitant]
  8. ATIVAN [Concomitant]

REACTIONS (4)
  - FEELING JITTERY [None]
  - PALPITATIONS [None]
  - TACHYCARDIA [None]
  - PRODUCT QUALITY ISSUE [None]
